FAERS Safety Report 8857924 (Version 1)
Quarter: 2012Q4

REPORT INFORMATION
  Report Type: 
  Country: US (occurrence: US)
  Receive Date: 20121024
  Receipt Date: 20121024
  Transmission Date: 20130627
  Serious: No
  Sender: FDA-Public Use
  Company Number: US-AMGEN-USASP2012003318

PATIENT
  Age: 51 Year
  Sex: Female
  Weight: 108.84 kg

DRUGS (15)
  1. ENBREL [Suspect]
     Indication: PRODUCT USED FOR UNKNOWN INDICATION
     Dosage: 50 mg, qwk
     Route: 058
  2. ALBUTEROL                          /00139501/ [Concomitant]
     Dosage: 90 mug, UNK
  3. NAPROSYN /00256201/ [Concomitant]
     Dosage: 250 mg, UNK
  4. AEROBID [Concomitant]
     Dosage: 250 mug, UNK
  5. METHOTREXATE [Concomitant]
     Dosage: 2.5 mg, UNK
  6. FOLIC ACID [Concomitant]
     Dosage: 1 mg, UNK
  7. VITAMIN B COMPLEX [Concomitant]
     Dosage: UNK
  8. VITAMIN B12                        /00056201/ [Concomitant]
     Dosage: 1000 mug, UNK
  9. ASCORBIC ACID W/ECHINACEA SPP. [Concomitant]
     Dosage: UNK
  10. IRON [Concomitant]
     Dosage: 18 mg, UNK
  11. PROTEIN [Concomitant]
     Dosage: 975 mg, UNK
  12. FISH OIL [Concomitant]
     Dosage: UNK
  13. ALFALFA                            /01255601/ [Concomitant]
     Dosage: 250 mg, UNK
  14. VICODIN [Concomitant]
     Dosage: UNK
  15. NEXIUM                             /01479302/ [Concomitant]
     Dosage: 20 mg, UNK

REACTIONS (1)
  - Pruritus [Unknown]
